FAERS Safety Report 21620934 (Version 2)
Quarter: 2022Q4

REPORT INFORMATION
  Report Type: Spontaneous
  Country: JP (occurrence: JP)
  Receive Date: 20221121
  Receipt Date: 20221208
  Transmission Date: 20230113
  Serious: Yes (Hospitalization)
  Sender: FDA-Public Use
  Company Number: JP-SERVIER-S22010637

PATIENT
  Sex: Male

DRUGS (5)
  1. ONIVYDE [Suspect]
     Active Substance: IRINOTECAN HYDROCHLORIDE
     Indication: Acinar cell carcinoma of pancreas
     Dosage: 50 MG/M2, 2X A MONTH
     Route: 065
  2. ONIVYDE [Suspect]
     Active Substance: IRINOTECAN HYDROCHLORIDE
     Indication: Off label use
  3. FLUOROURACIL [Concomitant]
     Active Substance: FLUOROURACIL
     Indication: Acinar cell carcinoma of pancreas
     Dosage: 2400 MG/M2
     Route: 065
  4. LEVOLEUCOVORIN CALCIUM [Concomitant]
     Active Substance: LEVOLEUCOVORIN CALCIUM
     Indication: Acinar cell carcinoma of pancreas
     Dosage: 200 MG/M2
     Route: 065
  5. INSULIN NOS [Concomitant]
     Active Substance: INSULIN NOS
     Indication: Diabetes mellitus
     Dosage: UNK

REACTIONS (3)
  - Cholangitis [Recovered/Resolved]
  - General physical health deterioration [Not Recovered/Not Resolved]
  - Malignant neoplasm progression [Unknown]
